FAERS Safety Report 16957510 (Version 1)
Quarter: 2019Q4

REPORT INFORMATION
  Report Type: Spontaneous
  Country: TR (occurrence: TR)
  Receive Date: 20191024
  Receipt Date: 20191024
  Transmission Date: 20200122
  Serious: Yes (Death, Hospitalization)
  Sender: FDA-Public Use
  Company Number: TR-JNJFOC-20191020211

PATIENT
  Age: 68 Year
  Sex: Female

DRUGS (3)
  1. XEPLION [Suspect]
     Active Substance: PALIPERIDONE PALMITATE
     Dosage: 8TH DAY
     Route: 030
  2. XEPLION [Suspect]
     Active Substance: PALIPERIDONE PALMITATE
     Indication: PRODUCT USED FOR UNKNOWN INDICATION
     Dosage: 1ST DAY
     Route: 030
  3. XEPLION [Suspect]
     Active Substance: PALIPERIDONE PALMITATE
     Dosage: 100 MG ON THE 38TH DAY
     Route: 030

REACTIONS (2)
  - Aspiration [Fatal]
  - Extrapyramidal disorder [Not Recovered/Not Resolved]
